FAERS Safety Report 13415108 (Version 9)
Quarter: 2017Q4

REPORT INFORMATION
  Report Type: Report from Study
  Country: CA (occurrence: CA)
  Receive Date: 20170406
  Receipt Date: 20171206
  Transmission Date: 20180320
  Serious: Yes (Other)
  Sender: FDA-Public Use
  Company Number: CA-SA-2016SA232283

PATIENT
  Age: 43 Year
  Sex: Female

DRUGS (13)
  1. LEMTRADA [Suspect]
     Active Substance: ALEMTUZUMAB
     Indication: RELAPSING-REMITTING MULTIPLE SCLEROSIS
     Route: 041
     Dates: start: 20161222, end: 20161223
  2. ACETAMINOPHEN. [Concomitant]
     Active Substance: ACETAMINOPHEN
     Indication: PREMEDICATION
     Dosage: DOSE: 650-1000 MG
     Route: 048
     Dates: start: 20161215
  3. TYLENOL [Concomitant]
     Active Substance: ACETAMINOPHEN
     Indication: PREMEDICATION
     Route: 048
     Dates: start: 20161215
  4. DIPHENHYDRAMINE. [Concomitant]
     Active Substance: DIPHENHYDRAMINE
     Indication: PREMEDICATION
     Dosage: DOSE: 25-50 MG
     Route: 048
     Dates: start: 20161215
  5. METHYLPREDNISOLONE. [Suspect]
     Active Substance: METHYLPREDNISOLONE
     Indication: PREMEDICATION
     Route: 042
     Dates: start: 20161215
  6. DIMENHYDRINATE. [Concomitant]
     Active Substance: DIMENHYDRINATE
     Indication: PREMEDICATION
     Route: 048
     Dates: start: 20161215
  7. RANITIDINE. [Concomitant]
     Active Substance: RANITIDINE
     Indication: PREMEDICATION
     Route: 048
     Dates: start: 20161215
  8. LEMTRADA [Suspect]
     Active Substance: ALEMTUZUMAB
     Indication: RELAPSING-REMITTING MULTIPLE SCLEROSIS
     Route: 041
     Dates: start: 20161215, end: 20161216
  9. ATIVAN [Concomitant]
     Active Substance: LORAZEPAM
     Indication: SLEEP DISORDER
     Dosage: AT BEDTIME
     Route: 048
  10. LEMTRADA [Suspect]
     Active Substance: ALEMTUZUMAB
     Indication: RELAPSING-REMITTING MULTIPLE SCLEROSIS
     Route: 041
     Dates: start: 20161220, end: 20161220
  11. ADVIL [Concomitant]
     Active Substance: IBUPROFEN
     Indication: PREMEDICATION
     Route: 065
     Dates: start: 20161215
  12. BENADRYL [Concomitant]
     Active Substance: DIPHENHYDRAMINE HYDROCHLORIDE
     Indication: PREMEDICATION
     Route: 048
     Dates: start: 20161215
  13. ACYCLOVIR. [Suspect]
     Active Substance: ACYCLOVIR
     Indication: PREMEDICATION
     Route: 048
     Dates: start: 20161215

REACTIONS (32)
  - Fatigue [Recovering/Resolving]
  - Neutropenia [Recovered/Resolved]
  - Blood pressure increased [Recovering/Resolving]
  - Limb discomfort [Recovered/Resolved]
  - Urticaria [Recovered/Resolved]
  - Blood urine present [Unknown]
  - Ocular discomfort [Recovered/Resolved]
  - Red blood cell count decreased [Not Recovered/Not Resolved]
  - Motion sickness [Recovered/Resolved]
  - Urine abnormality [Recovered/Resolved]
  - Urine leukocyte esterase positive [Recovered/Resolved]
  - Red blood cells urine positive [Recovered/Resolved]
  - Malaise [Not Recovered/Not Resolved]
  - Dysmenorrhoea [Not Recovered/Not Resolved]
  - Nausea [Not Recovered/Not Resolved]
  - Neutrophil count decreased [Recovered/Resolved]
  - Haematocrit decreased [Recovered/Resolved]
  - Insomnia [Recovered/Resolved]
  - Breast pain [Not Recovered/Not Resolved]
  - Dizziness [Recovering/Resolving]
  - Mean cell haemoglobin increased [Recovered/Resolved]
  - Muscle fatigue [Recovered/Resolved]
  - Headache [Recovering/Resolving]
  - Lymphocyte count decreased [Not Recovered/Not Resolved]
  - Asthenia [Recovering/Resolving]
  - Red blood cell elliptocytes present [Not Recovered/Not Resolved]
  - Heart rate increased [Recovered/Resolved]
  - Vision blurred [Recovered/Resolved]
  - Haemoglobin decreased [Recovered/Resolved]
  - White blood cell count decreased [Not Recovered/Not Resolved]
  - Hyperacusis [Recovered/Resolved]
  - Photophobia [Recovered/Resolved]

NARRATIVE: CASE EVENT DATE: 201612
